FAERS Safety Report 22135776 (Version 1)
Quarter: 2023Q1

REPORT INFORMATION
  Report Type: Spontaneous
  Country: US (occurrence: None)
  Receive Date: 20230323
  Receipt Date: 20230323
  Transmission Date: 20230418
  Serious: Yes (Other)
  Sender: FDA-Public Use
  Company Number: None

PATIENT
  Age: 25 Year
  Sex: Male
  Weight: 90 kg

DRUGS (5)
  1. ASCIMINIB [Suspect]
     Active Substance: ASCIMINIB
     Indication: Chronic myeloid leukaemia
  2. TRIUMEQ [Concomitant]
     Active Substance: ABACAVIR SULFATE\DOLUTEGRAVIR SODIUM\LAMIVUDINE
  3. Alazopram [Concomitant]
  4. WELLBUTRIN [Concomitant]
     Active Substance: BUPROPION HYDROCHLORIDE
  5. Gabenpatin [Concomitant]

REACTIONS (11)
  - Insomnia [None]
  - Anxiety [None]
  - Depression [None]
  - Amnesia [None]
  - Somnambulism [None]
  - Chest pain [None]
  - Headache [None]
  - Mental disorder [None]
  - Impaired quality of life [None]
  - Wrong product administered [None]
  - Memory impairment [None]

NARRATIVE: CASE EVENT DATE: 20230322
